FAERS Safety Report 14208854 (Version 2)
Quarter: 2018Q1

REPORT INFORMATION
  Report Type: Spontaneous
  Country: US (occurrence: US)
  Receive Date: 20171121
  Receipt Date: 20180209
  Transmission Date: 20180508
  Serious: Yes (Death, Hospitalization)
  Sender: FDA-Public Use
  Company Number: US-JNJFOC-20171033462

PATIENT
  Age: 63 Year
  Sex: Female

DRUGS (2)
  1. XARELTO [Suspect]
     Active Substance: RIVAROXABAN
     Indication: PULMONARY EMBOLISM
     Dosage: IN THE VARYING DOSE OF 15 MG AND 20 MG
     Route: 048
     Dates: start: 20150715, end: 20151031
  2. XARELTO [Suspect]
     Active Substance: RIVAROXABAN
     Indication: DEEP VEIN THROMBOSIS
     Dosage: IN THE VARYING DOSE OF 15 MG AND 20 MG
     Route: 048
     Dates: start: 20150715, end: 20151031

REACTIONS (1)
  - Post procedural haemorrhage [Fatal]

NARRATIVE: CASE EVENT DATE: 20151031
